FAERS Safety Report 5085205-1 (Version None)
Quarter: 2006Q3

REPORT INFORMATION
  Report Type: 
  Country: None (occurrence: None)
  Receive Date: 20060731
  Receipt Date: 20050908
  Transmission Date: 20061208
  Serious: Yes (Other)
  Sender: FDA-Public Use
  Company Number: 200511907GDS

PATIENT
  Age: 78 Year
  Sex: Female

DRUGS (6)
  1. MOXIFLOXACIN HCL [Suspect]
     Indication: URINARY TRACT INFECTION
     Dosage: 400 MG, TOTAL DAILY
  2. WARFARIN SODIUM [Suspect]
     Indication: ATRIAL FIBRILLATION
     Dosage: SEE IMAGE
  3. ALLOPURINOL [Concomitant]
  4. IRBESARTAN [Concomitant]
  5. PREDNISONE [Concomitant]
  6. ATORVASTATIN CALCIUM [Concomitant]

REACTIONS (1)
  - INTERNATIONAL NORMALISED RATIO INCREASED [None]
